FAERS Safety Report 7959665-X (Version None)
Quarter: 2011Q4

REPORT INFORMATION
  Report Type: 
  Country: None (occurrence: None)
  Receive Date: 20111206
  Receipt Date: 20111121
  Transmission Date: 20120403
  Serious: Yes (Other)
  Sender: FDA-Public Use
  Company Number: ES-TEVA-311217ISR

PATIENT
  Age: 35 Year
  Sex: Male

DRUGS (2)
  1. OLANZAPINE [Suspect]
     Indication: SCHIZOPHRENIA
     Dosage: 10 MILLIGRAM;
  2. CLOZAPINE [Suspect]
     Indication: SCHIZOPHRENIA
     Dosage: 25 MILLIGRAM;

REACTIONS (1)
  - LIVER INJURY [None]
